FAERS Safety Report 8216072-2 (Version None)
Quarter: 2012Q1

REPORT INFORMATION
  Report Type: 
  Country: None (occurrence: None)
  Receive Date: 20120316
  Receipt Date: 20120312
  Transmission Date: 20120608
  Serious: Yes (Other)
  Sender: FDA-Public Use
  Company Number: US-BAYER-2012-010327

PATIENT
  Age: 49 Year
  Sex: Female

DRUGS (23)
  1. HEPARIN [Concomitant]
     Dosage: UNK
     Dates: start: 20031017, end: 20031017
  2. ROCURONIUM BROMIDE [Concomitant]
     Dosage: 50 MG, UNK
     Dates: start: 20031017, end: 20031017
  3. TRASYLOL [Suspect]
     Dosage: 50 CC/HR INFUSION
     Dates: start: 20031017, end: 20031017
  4. ZYBAN [Concomitant]
     Dosage: 150 MG, QD
  5. CAPTOPRIL [Concomitant]
     Dosage: 10 MG, BID
  6. VERSED [Concomitant]
     Dosage: UNK
     Dates: start: 20031017, end: 20031017
  7. NITROGLYCERIN [Concomitant]
     Dosage: UNK
     Dates: start: 20031017, end: 20031017
  8. PAPAVERINE [Concomitant]
     Dosage: 90 MG, UNK
     Dates: start: 20031017, end: 20031017
  9. ETOMIDATE [Concomitant]
     Dosage: UNK
     Dates: start: 20031017, end: 20031017
  10. PLATELETS [Concomitant]
  11. TRASYLOL [Suspect]
     Indication: CORONARY ARTERY BYPASS
     Dosage: 100 ML, BID
     Route: 042
     Dates: start: 20031017, end: 20031017
  12. ZOCOR [Concomitant]
     Dosage: 40 MG, QD
  13. LASIX [Concomitant]
     Dosage: UNK UNK, QD
  14. PLAVIX [Concomitant]
     Dosage: 75 MG, QD
  15. AVANDIA [Concomitant]
     Dosage: 4 MG, AT NIGHT
  16. LIDOCAINE [Concomitant]
     Dosage: 50 MG, UNK
     Dates: start: 20031017, end: 20031017
  17. ZINACEF [Concomitant]
     Dosage: 1.5 G, UNK
     Dates: start: 20031017, end: 20031017
  18. PROTAMINE SULFATE [Concomitant]
     Dosage: UNK
     Dates: start: 20031017, end: 20031017
  19. VERAPAMIL [Concomitant]
     Dosage: 240 MG, QD
  20. MAXZIDE [Concomitant]
     Dosage: 50 MG, QD
  21. LASIX [Concomitant]
     Dosage: 20 MG, UNK
     Dates: start: 20031017, end: 20031017
  22. LABETALOL HCL [Concomitant]
     Dosage: 10 MG, UNK
     Dates: start: 20031017, end: 20031017
  23. SUCCINYLCHOLINE CHLORIDE [Concomitant]
     Dosage: 140 MG, UNK
     Dates: start: 20031017, end: 20031017

REACTIONS (2)
  - RENAL FAILURE ACUTE [None]
  - RENAL IMPAIRMENT [None]
